FAERS Safety Report 7168112-X (Version None)
Quarter: 2010Q4

REPORT INFORMATION
  Report Type: 
  Country: None (occurrence: None)
  Receive Date: 20101216
  Receipt Date: 20101203
  Transmission Date: 20110411
  Serious: No
  Sender: FDA-Public Use
  Company Number: US-PFIZER INC-2010164151

PATIENT
  Sex: Female
  Weight: 68 kg

DRUGS (4)
  1. CONJUGATED ESTROGEN [Suspect]
     Dosage: 0.3 MG, DAILY
     Route: 048
     Dates: end: 20101101
  2. ALENDRONATE SODIUM [Concomitant]
     Indication: OSTEOPOROSIS
     Dosage: 70 MG, UNK
  3. CALCIUM [Concomitant]
     Dosage: UNK
  4. VITAMIN D [Concomitant]
     Dosage: UNK

REACTIONS (4)
  - AGGRESSION [None]
  - MOOD ALTERED [None]
  - SKIN DISCOLOURATION [None]
  - YELLOW SKIN [None]
